FAERS Safety Report 9091618 (Version 1)
Quarter: 2013Q1

REPORT INFORMATION
  Report Type: Spontaneous
  Country: DK (occurrence: DE)
  Receive Date: 20130131
  Receipt Date: 20130131
  Transmission Date: 20140127
  Serious: Yes (Other)
  Sender: FDA-Public Use
  Company Number: DE-FRI-1000042276

PATIENT
  Age: 84 Year
  Sex: Female

DRUGS (5)
  1. CITALOPRAM [Suspect]
     Route: 048
  2. AMARYL [Concomitant]
     Route: 048
  3. ACERBON [Concomitant]
     Route: 048
  4. AQUAPHOR [Concomitant]
     Route: 048
  5. MOCLOBEMIDE [Concomitant]

REACTIONS (1)
  - Haemorrhagic erosive gastritis [Recovering/Resolving]
